FAERS Safety Report 11532110 (Version 1)
Quarter: 2015Q3

REPORT INFORMATION
  Report Type: Spontaneous
  Country: US (occurrence: US)
  Receive Date: 20150921
  Receipt Date: 20150921
  Transmission Date: 20151125
  Serious: Yes (Death, Other)
  Sender: FDA-Public Use
  Company Number: US-TAKEDA-TPA2013A06424

PATIENT

DRUGS (1)
  1. ACTOS [Suspect]
     Active Substance: PIOGLITAZONE HYDROCHLORIDE
     Indication: TYPE 2 DIABETES MELLITUS
     Dosage: 30 MG DAILY THEN 15 MG DAILY
     Dates: start: 20090221, end: 20120614

REACTIONS (2)
  - Metastatic carcinoma of the bladder [Fatal]
  - Bladder cancer [Fatal]

NARRATIVE: CASE EVENT DATE: 20120130
